FAERS Safety Report 9983787 (Version 1)
Quarter: 2014Q1

REPORT INFORMATION
  Report Type: Spontaneous
  Country: CL (occurrence: CL)
  Receive Date: 20140307
  Receipt Date: 20140307
  Transmission Date: 20141002
  Serious: Yes (Other)
  Sender: FDA-Public Use
  Company Number: CL-GLAXOSMITHKLINE-A1063914A

PATIENT
  Age: 57 Year
  Sex: Male

DRUGS (3)
  1. VOTRIENT [Suspect]
     Indication: RENAL CANCER
     Dosage: 800MG PER DAY
     Route: 048
     Dates: start: 20140130
  2. RANITIDINE [Concomitant]
     Dosage: 150MG UNKNOWN
     Route: 048
     Dates: end: 201402
  3. OMEPRAZOLE [Concomitant]

REACTIONS (1)
  - Atrial fibrillation [Recovered/Resolved]
